FAERS Safety Report 22315657 (Version 1)
Quarter: 2023Q2

REPORT INFORMATION
  Report Type: Spontaneous
  Country: US (occurrence: None)
  Receive Date: 20230511
  Receipt Date: 20230511
  Transmission Date: 20230722
  Serious: Yes (Hospitalization)
  Sender: FDA-Public Use
  Company Number: None

PATIENT
  Sex: Female

DRUGS (3)
  1. TADALAFIL [Suspect]
     Active Substance: TADALAFIL
     Indication: Pulmonary arterial hypertension
     Dosage: FREQUENCY : AS DIRECTED;?TAKE 1 TABLET BY MOUTH DAILY FOR ONE MONTH, THEN INCREASE TO 2 TABLETS DAIL
     Route: 048
     Dates: start: 202301
  2. OPSUMIT [Suspect]
     Active Substance: MACITENTAN
  3. TREPROSTINIL [Suspect]
     Active Substance: TREPROSTINIL

REACTIONS (2)
  - Localised infection [None]
  - Pain [None]
